FAERS Safety Report 7233580-1 (Version None)
Quarter: 2011Q1

REPORT INFORMATION
  Report Type: 
  Country: None (occurrence: None)
  Receive Date: 20110119
  Receipt Date: 20100108
  Transmission Date: 20110831
  Serious: No
  Sender: FDA-Public Use
  Company Number: US-PFIZER INC-2010004330

PATIENT
  Sex: Female

DRUGS (3)
  1. LIPITOR [Concomitant]
     Indication: BLOOD CHOLESTEROL INCREASED
     Dosage: UNK
  2. AROMASIN [Suspect]
     Indication: BREAST CANCER
     Dosage: 25 MG, DAILY
     Dates: start: 20091130
  3. LASIX [Concomitant]
     Indication: HYPERTENSION
     Dosage: UNK

REACTIONS (1)
  - COUGH [None]
